FAERS Safety Report 5357348-6 (Version None)
Quarter: 2007Q2

REPORT INFORMATION
  Report Type: 
  Country: None (occurrence: None)
  Receive Date: 20070614
  Receipt Date: 20070612
  Transmission Date: 20071010
  Serious: Yes (Other)
  Sender: FDA-Public Use
  Company Number: A0655276A

PATIENT
  Sex: Female

DRUGS (4)
  1. LAMICTAL [Suspect]
     Indication: BIPOLAR DISORDER
     Dosage: 250MG PER DAY
     Route: 048
  2. THYROID TAB [Concomitant]
  3. UNSPECIFIED MEDICATION [Concomitant]
  4. UNSPECIFIED MEDICATION [Concomitant]

REACTIONS (6)
  - CONTUSION [None]
  - NEUTROPHIL COUNT INCREASED [None]
  - PLATELET COUNT DECREASED [None]
  - RASH [None]
  - SPLENOMEGALY [None]
  - THYROIDITIS [None]
